FAERS Safety Report 7891170-1 (Version None)
Quarter: 2011Q4

REPORT INFORMATION
  Report Type: 
  Country: None (occurrence: None)
  Receive Date: 20111103
  Receipt Date: 20110729
  Transmission Date: 20120403
  Serious: No
  Sender: FDA-Public Use
  Company Number: US-AMGEN-USASP2011038661

PATIENT
  Age: 52 Year
  Sex: Female
  Weight: 112.9 kg

DRUGS (10)
  1. METFORMIN HCL [Concomitant]
     Dosage: 500 MG, UNK
  2. MULTI-VITAMIN [Concomitant]
  3. LORATADINE AND PSEUDOEPHEDRINE SULFATE [Concomitant]
     Dosage: 240 MG, UNK
  4. LOSARTAN POTASSIUM [Concomitant]
     Dosage: 100 MG, UNK
  5. IRON [Concomitant]
     Dosage: UNK
  6. FISH OIL [Concomitant]
     Dosage: UNK
  7. VITAMIN D [Concomitant]
     Dosage: UNK
  8. ENBREL [Suspect]
     Indication: PRODUCT USED FOR UNKNOWN INDICATION
     Dosage: 50 MG, QWK
     Route: 058
  9. PRILOSEC [Concomitant]
     Dosage: 10 MG, UNK
  10. CYCLOBENZAPRINE [Concomitant]
     Dosage: 30 MG, UNK

REACTIONS (2)
  - BURNING SENSATION [None]
  - FEELING HOT [None]
